FAERS Safety Report 24043108 (Version 3)
Quarter: 2025Q2

REPORT INFORMATION
  Report Type: Report from Study
  Country: US (occurrence: US)
  Receive Date: 20240702
  Receipt Date: 20250402
  Transmission Date: 20250716
  Serious: Yes (Death, Other)
  Sender: MERCK SHARP AND DOHME
  Company Number: US-009507513-2406USA009176

PATIENT
  Sex: Female

DRUGS (10)
  1. WINREVAIR [Suspect]
     Active Substance: SOTATERCEPT-CSRK
     Indication: Pulmonary arterial hypertension
     Dosage: DOSE DESCRIPTION : 1.6 MILLILITER, Q3W, STRENGTH: 45 MG?DAILY DOSE : 0.075 MILLILITER?REGIMEN DOS...
     Route: 058
     Dates: start: 202405
  2. WINREVAIR [Suspect]
     Active Substance: SOTATERCEPT-CSRK
  3. WINREVAIR [Suspect]
     Active Substance: SOTATERCEPT-CSRK
  4. WINREVAIR [Suspect]
     Active Substance: SOTATERCEPT-CSRK
  5. WINREVAIR [Suspect]
     Active Substance: SOTATERCEPT-CSRK
  6. WINREVAIR [Suspect]
     Active Substance: SOTATERCEPT-CSRK
  7. WINREVAIR [Suspect]
     Active Substance: SOTATERCEPT-CSRK
  8. WINREVAIR [Suspect]
     Active Substance: SOTATERCEPT-CSRK
  9. OPSUMIT [Concomitant]
     Active Substance: MACITENTAN
  10. UPTRAVI [Concomitant]
     Active Substance: SELEXIPAG

REACTIONS (11)
  - Death [Fatal]
  - Diarrhoea haemorrhagic [Unknown]
  - Diarrhoea [Unknown]
  - Constipation [Unknown]
  - Mineral supplementation [Recovered/Resolved]
  - Injection site pain [Unknown]
  - Decreased appetite [Unknown]
  - Arthralgia [Unknown]
  - Dizziness [Unknown]
  - Dyspnoea exertional [Unknown]
  - Product use issue [Unknown]

NARRATIVE: CASE EVENT DATE: 20240101
